FAERS Safety Report 7225770-9 (Version None)
Quarter: 2011Q1

REPORT INFORMATION
  Report Type: 
  Country: None (occurrence: None)
  Receive Date: 20110110
  Receipt Date: 20110110
  Transmission Date: 20110831
  Serious: No
  Sender: FDA-Public Use
  Company Number: None

PATIENT
  Age: 29 Year
  Sex: Female
  Weight: 58.514 kg

DRUGS (1)
  1. MELATONIN 5MG REXALL SUNDOWN, INC. [Suspect]
     Indication: SLEEP DISORDER
     Dosage: 2 PILLS/ 5MG EACH ONCE PO
     Route: 048

REACTIONS (3)
  - HEART RATE INCREASED [None]
  - DYSPNOEA [None]
  - PRURITUS GENERALISED [None]
